FAERS Safety Report 26011673 (Version 1)
Quarter: 2025Q4

REPORT INFORMATION
  Report Type: Spontaneous
  Country: EG (occurrence: EG)
  Receive Date: 20251107
  Receipt Date: 20251107
  Transmission Date: 20260119
  Serious: Yes (Other)
  Sender: HIKMA
  Company Number: EG-HIKMA PHARMACEUTICALS-EG-H14001-25-11900

PATIENT
  Age: 37 Year
  Sex: Female
  Weight: 42 kg

DRUGS (2)
  1. CARBOPLATIN [Suspect]
     Active Substance: CARBOPLATIN
     Indication: Breast cancer
     Dosage: 571 MILLIGRAM, 3W
     Route: 041
     Dates: start: 20250731
  2. PACLITAXEL [Suspect]
     Active Substance: PACLITAXEL
     Indication: Breast cancer
     Dosage: 100 MILLIGRAM, QD, DAY 1,8,15 EVERY 21 DAYS
     Route: 041
     Dates: start: 20250731

REACTIONS (4)
  - Dysgeusia [Recovered/Resolved]
  - Decreased appetite [Recovered/Resolved]
  - Neutropenia [Recovered/Resolved]
  - Leukopenia [Recovered/Resolved]

NARRATIVE: CASE EVENT DATE: 20250801
